FAERS Safety Report 23762527 (Version 3)
Quarter: 2024Q2

REPORT INFORMATION
  Report Type: Spontaneous
  Country: IN (occurrence: IN)
  Receive Date: 20240419
  Receipt Date: 20240614
  Transmission Date: 20240716
  Serious: Yes (Hospitalization, Other)
  Sender: FDA-Public Use
  Company Number: IN-PFIZER INC-PV202400031093

PATIENT
  Age: 51 Year
  Sex: Female
  Weight: 56.1 kg

DRUGS (10)
  1. PALBOCICLIB [Suspect]
     Active Substance: PALBOCICLIB
     Indication: Breast cancer metastatic
     Dosage: 100 MG; CYCLIC OD; NOON; 2WEEKS ON; 1 WEEK OFF
     Route: 048
     Dates: start: 202402
  2. PALBOCICLIB [Suspect]
     Active Substance: PALBOCICLIB
     Dosage: 125 MG, 1X/DAY
     Route: 048
     Dates: start: 20240209, end: 20240218
  3. PALBOCICLIB [Suspect]
     Active Substance: PALBOCICLIB
     Dosage: 125 MG
     Dates: start: 20240218, end: 20240306
  4. PALBOCICLIB [Suspect]
     Active Substance: PALBOCICLIB
     Dosage: 100 MG, 1X/DAY
     Route: 048
     Dates: start: 20240307, end: 20240316
  5. PALBOCICLIB [Suspect]
     Active Substance: PALBOCICLIB
     Dosage: 100 MG
     Dates: start: 20240319, end: 20240408
  6. PALBOCICLIB [Suspect]
     Active Substance: PALBOCICLIB
     Dosage: 125 MG, ALTERNATE DAY
     Route: 048
     Dates: start: 20240409, end: 20240426
  7. PALBOCICLIB [Suspect]
     Active Substance: PALBOCICLIB
     Dosage: 100 MG, 1X/DAY X 3WEEKS ON 1 WEEK OFF  X1MONTH
     Route: 048
  8. LETROZOLE [Concomitant]
     Active Substance: LETROZOLE
     Dosage: 2.5 MG; NIGHT
     Dates: start: 20240208
  9. DENOSUMAB [Concomitant]
     Active Substance: DENOSUMAB
     Dosage: S/C; ONCE  A MONTH
  10. VITAMIN D NOS [Concomitant]
     Active Substance: CHOLECALCIFEROL\ERGOCALCIFEROL

REACTIONS (10)
  - Platelet count decreased [Recovered/Resolved with Sequelae]
  - White blood cell count decreased [Recovered/Resolved with Sequelae]
  - Decreased appetite [Recovered/Resolved]
  - Oesophagitis [Recovered/Resolved]
  - Oropharyngeal pain [Recovered/Resolved]
  - Dysphagia [Recovered/Resolved]
  - Bicytopenia [Unknown]
  - Haemoglobin decreased [Recovered/Resolved with Sequelae]
  - Full blood count abnormal [Recovered/Resolved with Sequelae]
  - Off label use [Unknown]
